FAERS Safety Report 12945561 (Version 5)
Quarter: 2017Q3

REPORT INFORMATION
  Report Type: Spontaneous
  Country: US (occurrence: US)
  Receive Date: 20161116
  Receipt Date: 20170707
  Transmission Date: 20171127
  Serious: No
  Sender: FDA-Public Use
  Company Number: US-JNJFOC-20161100278

PATIENT
  Age: 55 Year
  Sex: Female
  Weight: 44 kg

DRUGS (3)
  1. ELMIRON [Suspect]
     Active Substance: PENTOSAN POLYSULFATE SODIUM
     Indication: CYSTITIS INTERSTITIAL
     Route: 048
     Dates: start: 20160811
  2. ELMIRON [Suspect]
     Active Substance: PENTOSAN POLYSULFATE SODIUM
     Indication: CYSTITIS INTERSTITIAL
     Dosage: 1-2 TABLETS A DAY
     Route: 048
     Dates: start: 201606, end: 20160811
  3. ELMIRON [Suspect]
     Active Substance: PENTOSAN POLYSULFATE SODIUM
     Indication: CYSTITIS INTERSTITIAL
     Route: 048
     Dates: start: 20160511, end: 201605

REACTIONS (8)
  - Hypersensitivity [Unknown]
  - Bladder pain [Unknown]
  - Weight decreased [Unknown]
  - Drug dose omission [Unknown]
  - Feeling abnormal [Unknown]
  - Cystitis interstitial [Recovered/Resolved]
  - Pollakiuria [Unknown]
  - Agitation [Unknown]

NARRATIVE: CASE EVENT DATE: 2016
